FAERS Safety Report 9124651 (Version 1)
Quarter: 2013Q1

REPORT INFORMATION
  Report Type: Spontaneous
  Country: US (occurrence: US)
  Receive Date: 20130227
  Receipt Date: 20130227
  Transmission Date: 20140127
  Serious: No
  Sender: FDA-Public Use
  Company Number: US-PFIZER INC-2013069407

PATIENT
  Sex: Male

DRUGS (2)
  1. LYRICA [Suspect]
     Dosage: UNK, TAKING 1 PILL A DAY
  2. METFORMIN [Concomitant]
     Dosage: UNK

REACTIONS (1)
  - Paraesthesia [Unknown]
